FAERS Safety Report 8377451-6 (Version None)
Quarter: 2012Q2

REPORT INFORMATION
  Report Type: 
  Country: None (occurrence: None)
  Receive Date: 20120522
  Receipt Date: 20110907
  Transmission Date: 20120825
  Serious: Yes (Hospitalization)
  Sender: FDA-Public Use
  Company Number: US-ASTRAZENECA-2011SE49308

PATIENT
  Age: 65 Year
  Sex: Female

DRUGS (16)
  1. SIMVASTATIN [Concomitant]
  2. NEXIUM [Suspect]
     Route: 048
  3. SUCRALFATE [Concomitant]
  4. ACIPHEX [Concomitant]
  5. HYDROCODONE BITARTRATE + ACETAMINOPHEN [Concomitant]
     Dosage: 1 TABLET EVERY 4 HOURS AS NEEDED
  6. OMEPRAZOLE [Suspect]
     Indication: GASTROOESOPHAGEAL REFLUX DISEASE
     Route: 048
  7. HYDROCHLOROTHIAZIDE [Concomitant]
  8. TRAMADOL HCL TABLET [Concomitant]
     Dosage: 1 TABLET (50 MG) 4 TIMES DAILT AS NEEDED
  9. SIMVASTATIN [Concomitant]
  10. AMOXICILLIN [Concomitant]
  11. BACLOFEN [Concomitant]
     Dosage: 1 TABLET (10 MG) 3 TIMES DAILY AS NEEDED
  12. RANITIDINE HCL [Concomitant]
  13. HYDROCODONE BITARTRATE + ACETAMINOPHEN [Concomitant]
     Dosage: 1 TO 2 TABLETS EVERY 6 HOURS AS NEEDED
  14. POTASSIUM CHLORIDE [Concomitant]
     Dosage: 1 CAPSULE DAILY
  15. GOLYTELY FOR SOLUTION [Concomitant]
  16. AMOXICILLIN AND CLAVULANATE POTASSIUM [Concomitant]

REACTIONS (8)
  - GASTRITIS [None]
  - PAIN [None]
  - DRUG INEFFECTIVE [None]
  - HYPERTENSION [None]
  - HYPERCHOLESTEROLAEMIA [None]
  - HYPOKALAEMIA [None]
  - HELICOBACTER GASTRITIS [None]
  - PEPTIC ULCER [None]
